FAERS Safety Report 16881792 (Version 1)
Quarter: 2019Q4

REPORT INFORMATION
  Report Type: Spontaneous
  Country: US (occurrence: US)
  Receive Date: 20191003
  Receipt Date: 20191003
  Transmission Date: 20200122
  Serious: Yes (Other)
  Sender: FDA-Public Use
  Company Number: US-PFIZER INC-2019426484

PATIENT
  Age: 69 Year
  Sex: Female

DRUGS (1)
  1. PREGABALIN. [Suspect]
     Active Substance: PREGABALIN
     Indication: NEUROPATHY PERIPHERAL
     Dosage: UNK

REACTIONS (8)
  - Flatulence [Unknown]
  - Bipolar disorder [Unknown]
  - Abdominal pain upper [Unknown]
  - Confusional state [Unknown]
  - Emotional disorder [Unknown]
  - Dehydration [Unknown]
  - Auditory disorder [Unknown]
  - Drug ineffective [Unknown]
